FAERS Safety Report 20761926 (Version 1)
Quarter: 2022Q2

REPORT INFORMATION
  Report Type: Spontaneous
  Country: US (occurrence: None)
  Receive Date: 20220427
  Receipt Date: 20220427
  Transmission Date: 20220721
  Serious: Yes (Death)
  Sender: FDA-Public Use
  Company Number: None

PATIENT
  Age: 79 Year
  Sex: Male
  Weight: 54.52 kg

DRUGS (14)
  1. CAPECITABINE [Suspect]
     Active Substance: CAPECITABINE
     Indication: Hepatic cancer
     Dosage: OTHER QUANTITY : 1500-1000 MG;?FREQUENCY : TWICE A DAY;?
     Route: 048
     Dates: start: 20220215, end: 20220427
  2. ALBUTEROL [Concomitant]
     Active Substance: ALBUTEROL
  3. BENZONATATE [Concomitant]
     Active Substance: BENZONATATE
  4. BUDESONIDE [Concomitant]
     Active Substance: BUDESONIDE
  5. DOCUSATE [Concomitant]
     Active Substance: DOCUSATE
  6. GUAIFENESIN [Concomitant]
     Active Substance: GUAIFENESIN
  7. ACETAMINOPHEN\HYDROCODONE [Concomitant]
     Active Substance: ACETAMINOPHEN\HYDROCODONE
  8. IPRAQTROPIUM-ALBUTEROL [Concomitant]
  9. HYDROCHLOROTHIAZIDE\IRBESARTAN [Concomitant]
     Active Substance: HYDROCHLOROTHIAZIDE\IRBESARTAN
  10. ONDANSETRON [Concomitant]
     Active Substance: ONDANSETRON
  11. SENNOSIDES [Concomitant]
     Active Substance: SENNOSIDES
  12. VITAMIN C [Concomitant]
     Active Substance: ASCORBIC ACID
  13. VITAMIN D3 [Concomitant]
     Active Substance: CHOLECALCIFEROL
  14. ZINC [Concomitant]
     Active Substance: ZINC

REACTIONS (1)
  - Death [None]

NARRATIVE: CASE EVENT DATE: 20220427
